FAERS Safety Report 19613321 (Version 1)
Quarter: 2021Q3

REPORT INFORMATION
  Report Type: Spontaneous
  Country: US (occurrence: US)
  Receive Date: 20210726
  Receipt Date: 20210726
  Transmission Date: 20211014
  Serious: No
  Sender: FDA-Public Use
  Company Number: None

PATIENT
  Age: 36 Year
  Sex: Female
  Weight: 85 kg

DRUGS (1)
  1. REMDESIVIR. [Suspect]
     Active Substance: REMDESIVIR
     Indication: COVID-19 PNEUMONIA
     Route: 042
     Dates: start: 20210722, end: 20210723

REACTIONS (4)
  - Tachycardia [None]
  - Chills [None]
  - Oxygen saturation decreased [None]
  - Dyspepsia [None]

NARRATIVE: CASE EVENT DATE: 20210723
